FAERS Safety Report 6728078-0 (Version None)
Quarter: 2010Q2

REPORT INFORMATION
  Report Type: 
  Country: None (occurrence: None)
  Receive Date: 20100517
  Receipt Date: 20100507
  Transmission Date: 20101027
  Serious: Yes (Other)
  Sender: FDA-Public Use
  Company Number: GXKR2010AT05211

PATIENT
  Age: 81 Year
  Sex: Female

DRUGS (1)
  1. DICLOFENAC SANDOZ (NGX) [Suspect]
     Dosage: 75 MG, BID
     Route: 065

REACTIONS (3)
  - BALANCE DISORDER [None]
  - HAEMATOMA [None]
  - VISUAL IMPAIRMENT [None]
